FAERS Safety Report 25203026 (Version 3)
Quarter: 2025Q2

REPORT INFORMATION
  Report Type: Spontaneous
  Country: JP (occurrence: JP)
  Receive Date: 20250416
  Receipt Date: 20250527
  Transmission Date: 20250717
  Serious: Yes (Other)
  Sender: RANBAXY
  Company Number: JP-SUN PHARMACEUTICAL INDUSTRIES LTD-2025R1-503284

PATIENT
  Age: 43 Year
  Sex: Male

DRUGS (2)
  1. TRETINOIN [Suspect]
     Active Substance: TRETINOIN
     Indication: Acute promyelocytic leukaemia
     Dosage: 45 MILLIGRAM/SQ. METER, DAILY
     Route: 065
  2. IDARUBICIN [Suspect]
     Active Substance: IDARUBICIN
     Indication: Acute promyelocytic leukaemia
     Route: 065

REACTIONS (1)
  - Cerebral haemorrhage [Recovering/Resolving]
